FAERS Safety Report 12317443 (Version 4)
Quarter: 2016Q2

REPORT INFORMATION
  Report Type: Spontaneous
  Country: CA (occurrence: CA)
  Receive Date: 20160429
  Receipt Date: 20160629
  Transmission Date: 20160815
  Serious: Yes (Death, Hospitalization, Other)
  Sender: FDA-Public Use
  Company Number: CA-ROCHE-1749110

PATIENT
  Age: 76 Year
  Sex: Male

DRUGS (9)
  1. XOLAIR [Suspect]
     Active Substance: OMALIZUMAB
     Indication: ASTHMA
     Route: 058
     Dates: start: 20150119, end: 20150119
  2. SALBUTAMOL [Concomitant]
     Active Substance: ALBUTEROL
     Route: 065
  3. MONTELUKAST [Concomitant]
     Active Substance: MONTELUKAST SODIUM
  4. XOLAIR [Suspect]
     Active Substance: OMALIZUMAB
     Route: 058
     Dates: start: 20160331
  5. ADVAIR HFA [Concomitant]
     Active Substance: FLUTICASONE PROPIONATE\SALMETEROL XINAFOATE
     Dosage: 250/50 UG
     Route: 065
  6. IPRATROPIUM [Concomitant]
     Active Substance: IPRATROPIUM
  7. APO-PREDNISONE [Concomitant]
     Active Substance: PREDNISONE
  8. XOLAIR [Suspect]
     Active Substance: OMALIZUMAB
     Route: 058
     Dates: start: 20160421
  9. SPIRIVA [Concomitant]
     Active Substance: TIOTROPIUM BROMIDE MONOHYDRATE
     Route: 065

REACTIONS (10)
  - Fatigue [Unknown]
  - Asthenia [Unknown]
  - Gastric cancer [Unknown]
  - Hypersensitivity [Recovered/Resolved]
  - Death [Fatal]
  - Haemoglobin decreased [Unknown]
  - Malaise [Unknown]
  - Ocular hyperaemia [Unknown]
  - Eye discharge [Unknown]
  - Eye pain [Unknown]

NARRATIVE: CASE EVENT DATE: 20150119
